FAERS Safety Report 8877027 (Version 1)
Quarter: 2012Q4

REPORT INFORMATION
  Report Type: 
  Country: JP (occurrence: JP)
  Receive Date: 20121030
  Receipt Date: 20121030
  Transmission Date: 20130627
  Serious: Yes (Death)
  Sender: FDA-Public Use
  Company Number: JP-ASTELLAS-2012JP010163

PATIENT
  Age: 74 Year
  Sex: Male

DRUGS (12)
  1. FUNGUARD [Suspect]
     Indication: STAPHYLOCOCCAL INFECTION
     Route: 065
  2. FUNGUARD [Suspect]
     Indication: BRONCHOPULMONARY ASPERGILLOSIS
     Route: 065
  3. PREDNISOLONE [Concomitant]
     Indication: ATYPICAL MYCOBACTERIAL INFECTION
     Dosage: 10 mg, Unknown/D
     Route: 065
  4. RIFAMPICIN [Concomitant]
     Indication: ATYPICAL MYCOBACTERIAL INFECTION
     Route: 065
  5. ETHAMBUTOL [Concomitant]
     Indication: ATYPICAL MYCOBACTERIAL INFECTION
     Route: 065
  6. CLARITHROMYCIN [Concomitant]
     Indication: ATYPICAL MYCOBACTERIAL INFECTION
     Route: 065
  7. VORICONAZOLE [Concomitant]
     Indication: ATYPICAL MYCOBACTERIAL INFECTION
     Dosage: 200 mg, Unknown/D
     Route: 065
  8. VORICONAZOLE [Concomitant]
     Indication: BRONCHOPULMONARY ASPERGILLOSIS
  9. VORICONAZOLE [Concomitant]
     Indication: STAPHYLOCOCCAL INFECTION
  10. VANCOMYCIN [Concomitant]
     Indication: STAPHYLOCOCCAL INFECTION
     Route: 065
  11. BIAPENEM [Concomitant]
     Indication: STAPHYLOCOCCAL INFECTION
     Route: 065
  12. CORTICOSTEROID NOS [Concomitant]
     Indication: STAPHYLOCOCCAL INFECTION
     Route: 065

REACTIONS (2)
  - Drug ineffective [Unknown]
  - Bronchopulmonary aspergillosis [Fatal]
